FAERS Safety Report 8273494-1 (Version None)
Quarter: 2012Q2

REPORT INFORMATION
  Report Type: 
  Country: None (occurrence: None)
  Receive Date: 20120411
  Receipt Date: 20120403
  Transmission Date: 20120825
  Serious: Yes (Hospitalization)
  Sender: FDA-Public Use
  Company Number: DE-JNJFOC-20120202951

PATIENT
  Sex: Male
  Weight: 70 kg

DRUGS (2)
  1. SEROQUEL [Concomitant]
     Route: 048
  2. HALDOL [Suspect]
     Indication: ACCIDENTAL EXPOSURE
     Route: 048
     Dates: start: 20120131, end: 20120203

REACTIONS (3)
  - SOMNOLENCE [None]
  - URINARY RETENTION [None]
  - ACCIDENTAL EXPOSURE [None]
